FAERS Safety Report 5360121-6 (Version None)
Quarter: 2007Q2

REPORT INFORMATION
  Report Type: 
  Country: None (occurrence: None)
  Receive Date: 20070618
  Receipt Date: 20070613
  Transmission Date: 20071010
  Serious: Yes (Other)
  Sender: FDA-Public Use
  Company Number: PHBS2007BR02723

PATIENT
  Age: 37 Year
  Sex: Female
  Weight: 67 kg

DRUGS (2)
  1. FORASEQ [Suspect]
     Indication: ALLERGIC BRONCHITIS
     Dosage: UNK, BID
     Dates: start: 20061206
  2. FORASEQ [Suspect]
     Dosage: UNK, QD

REACTIONS (8)
  - BLOOD PRESSURE INCREASED [None]
  - CHEST PAIN [None]
  - DYSPNOEA [None]
  - HEART RATE INCREASED [None]
  - LIP SWELLING [None]
  - LUNG DISORDER [None]
  - PALPITATIONS [None]
  - SOMNOLENCE [None]
